FAERS Safety Report 13965705 (Version 2)
Quarter: 2017Q3

REPORT INFORMATION
  Report Type: Spontaneous
  Country: US (occurrence: US)
  Receive Date: 20170913
  Receipt Date: 20170927
  Transmission Date: 20171128
  Serious: No
  Sender: FDA-Public Use
  Company Number: US-PFIZER INC-2017392895

PATIENT

DRUGS (1)
  1. XELJANZ [Suspect]
     Active Substance: TOFACITINIB CITRATE
     Dosage: UNK

REACTIONS (6)
  - Drug ineffective [Unknown]
  - Tender joint count increased [Unknown]
  - Synovitis [Unknown]
  - Inflammatory marker increased [Unknown]
  - Swollen joint count increased [Unknown]
  - Bone erosion [Unknown]
